FAERS Safety Report 10086165 (Version 1)
Quarter: 2014Q2

REPORT INFORMATION
  Report Type: Spontaneous
  Country: US (occurrence: None)
  Receive Date: 20140417
  Receipt Date: 20140417
  Transmission Date: 20141212
  Serious: Yes (Death)
  Sender: FDA-Public Use
  Company Number: None

PATIENT
  Age: 73 Year
  Sex: Male

DRUGS (1)
  1. ADCIRCA [Suspect]
     Indication: COR PULMONALE CHRONIC
     Route: 048
     Dates: start: 20121004, end: 20140414

REACTIONS (1)
  - Death [None]
